FAERS Safety Report 7360271-9 (Version None)
Quarter: 2011Q1

REPORT INFORMATION
  Report Type: 
  Country: None (occurrence: None)
  Receive Date: 20110311
  Receipt Date: 20110228
  Transmission Date: 20110831
  Serious: Yes (Hospitalization)
  Sender: FDA-Public Use
  Company Number: UTC-005434

PATIENT
  Age: 57 Year
  Sex: Male

DRUGS (2)
  1. LETAIRIS [Suspect]
  2. TYVASO [Suspect]
     Dosage: 3-12 BREATHS QID (4 IN 1 D), INHALATION
     Route: 055

REACTIONS (6)
  - CHEST PAIN [None]
  - ANGIOEDEMA [None]
  - LIVER FUNCTION TEST ABNORMAL [None]
  - OEDEMA [None]
  - DYSPNOEA [None]
  - CHEST DISCOMFORT [None]
